FAERS Safety Report 9865545 (Version 2)
Quarter: 2014Q3

REPORT INFORMATION
  Report Type: Spontaneous
  Country: MX (occurrence: MX)
  Receive Date: 20140203
  Receipt Date: 20140713
  Transmission Date: 20150326
  Serious: Yes (Disabling, Other)
  Sender: FDA-Public Use
  Company Number: PHHY2014MX012940

PATIENT
  Age: 73 Year
  Sex: Female

DRUGS (4)
  1. DIOVAN [Suspect]
     Active Substance: VALSARTAN
     Indication: HYPERTENSION
     Dosage: 0.5 DF (320 MG), EVERY 12 HOURS
     Route: 048
     Dates: start: 201312
  2. LYRICA [Concomitant]
     Active Substance: PREGABALIN
     Indication: SLEEP DISORDER
     Dosage: 1 DF, DAILY
     Dates: start: 20140128
  3. ROFUCAL [Concomitant]
     Indication: BLOOD CHOLESTEROL
     Dosage: 2 DF, DAILY
  4. ROFUCAL [Concomitant]
     Indication: CARDIOVASCULAR DISORDER

REACTIONS (13)
  - Hypoaesthesia [Not Recovered/Not Resolved]
  - Ligament rupture [Not Recovered/Not Resolved]
  - Nausea [Recovered/Resolved]
  - Fluid retention [Not Recovered/Not Resolved]
  - Hypophagia [Not Recovered/Not Resolved]
  - Nervousness [Not Recovered/Not Resolved]
  - Food intolerance [Unknown]
  - Wrong technique in drug usage process [Not Recovered/Not Resolved]
  - Lower limb fracture [Recovered/Resolved]
  - Blood pressure increased [Unknown]
  - Sedation [Not Recovered/Not Resolved]
  - Upper limb fracture [Recovered/Resolved]
  - Feeling abnormal [Unknown]

NARRATIVE: CASE EVENT DATE: 201312
